FAERS Safety Report 17556210 (Version 1)
Quarter: 2020Q1

REPORT INFORMATION
  Report Type: Spontaneous
  Country: US (occurrence: US)
  Receive Date: 20200311
  Receipt Date: 20200311
  Transmission Date: 20200409
  Serious: No
  Sender: FDA-Public Use
  Company Number: None

PATIENT
  Age: 84 Year
  Sex: Male

DRUGS (1)
  1. IBRANCE [Suspect]
     Active Substance: PALBOCICLIB
     Indication: RETROPERITONEAL CANCER
     Route: 048
     Dates: start: 202002

REACTIONS (4)
  - Migraine [None]
  - Vomiting [None]
  - Vertigo [None]
  - Nausea [None]

NARRATIVE: CASE EVENT DATE: 20200311
